FAERS Safety Report 10168126 (Version 1)
Quarter: 2014Q2

REPORT INFORMATION
  Report Type: Spontaneous
  Country: ES (occurrence: ES)
  Receive Date: 20140512
  Receipt Date: 20140512
  Transmission Date: 20141212
  Serious: Yes (Disabling, Other)
  Sender: FDA-Public Use
  Company Number: ES-GILEAD-2014-0101986

PATIENT
  Age: 76 Year
  Sex: Male

DRUGS (1)
  1. VIREAD [Suspect]
     Indication: CHRONIC HEPATITIS B
     Dosage: 245MG 1 VEZ AL DIA
     Route: 048
     Dates: start: 20130605, end: 20140508

REACTIONS (2)
  - Back pain [Not Recovered/Not Resolved]
  - Spinal compression fracture [Not Recovered/Not Resolved]
